FAERS Safety Report 12178995 (Version 1)
Quarter: 2016Q1

REPORT INFORMATION
  Report Type: Spontaneous
  Country: US (occurrence: None)
  Receive Date: 20160314
  Receipt Date: 20160314
  Transmission Date: 20160526
  Serious: Yes (Hospitalization)
  Sender: FDA-Public Use
  Company Number: None

PATIENT
  Age: 39 Year
  Sex: Male
  Weight: 81.65 kg

DRUGS (1)
  1. TESTOSTERONE CYPIONATE 200MG/ML PHARM D SOLUTIONS/ SHIRAZ PHARM [Suspect]
     Active Substance: TESTOSTERONE CYPIONATE
     Indication: BLOOD TESTOSTERONE DECREASED
     Dosage: 80MG/0.4ML TWICE PER WEEK INTO THE MUSCLE
     Route: 030
     Dates: start: 20160304

REACTIONS (7)
  - Myositis [None]
  - Abscess [None]
  - Gait disturbance [None]
  - Rash macular [None]
  - Hyperhidrosis [None]
  - Skin warm [None]
  - Pyrexia [None]

NARRATIVE: CASE EVENT DATE: 20160309
